FAERS Safety Report 6918276-5 (Version None)
Quarter: 2010Q3

REPORT INFORMATION
  Report Type: 
  Country: None (occurrence: None)
  Receive Date: 20100722
  Receipt Date: 20090701
  Transmission Date: 20110219
  Serious: No
  Sender: FDA-Public Use
  Company Number: 2009-00304

PATIENT
  Age: 55 Year
  Sex: Female

DRUGS (6)
  1. ZICAM COLD REMEDY NASAL GEL [Suspect]
     Indication: SINUSITIS
     Dosage: BID X 90 DAYS
     Dates: start: 20080301, end: 20080101
  2. LEVOTHROID [Concomitant]
  3. PREMARIN [Concomitant]
  4. NUTRILITE MULTI-VITAMIN (AMWAY) [Concomitant]
  5. Z-PAK ANTIBIOTIC [Concomitant]
  6. CLINDAMYCIN [Concomitant]

REACTIONS (2)
  - AGEUSIA [None]
  - ANOSMIA [None]
